FAERS Safety Report 4893680-8 (Version None)
Quarter: 2005Q4

REPORT INFORMATION
  Report Type: 
  Country: None (occurrence: None)
  Receive Date: 20051223
  Receipt Date: 20050923
  Transmission Date: 20060501
  Serious: No
  Sender: FDA-Public Use
  Company Number: 2005PV002433

PATIENT
  Age: 50 Year
  Sex: Male
  Weight: 83.9154 kg

DRUGS (3)
  1. SYMLIN [Suspect]
     Indication: DIABETES MELLITUS INSULIN-DEPENDENT
     Dosage: 150 MCG;TID;SC, 30 MCG;TID;SC
     Route: 058
     Dates: start: 20050921, end: 20050923
  2. SYMLIN [Suspect]
     Indication: DIABETES MELLITUS INSULIN-DEPENDENT
     Dosage: 150 MCG;TID;SC, 30 MCG;TID;SC
     Route: 058
     Dates: start: 20050924, end: 20051001
  3. HUMALOG [Concomitant]

REACTIONS (5)
  - DIARRHOEA [None]
  - MEDICATION ERROR [None]
  - NAUSEA [None]
  - REGURGITATION OF FOOD [None]
  - WRONG DRUG ADMINISTERED [None]
